FAERS Safety Report 23735704 (Version 1)
Quarter: 2024Q2

REPORT INFORMATION
  Report Type: Spontaneous
  Country: US (occurrence: None)
  Receive Date: 20240411
  Receipt Date: 20240411
  Transmission Date: 20240716
  Serious: No
  Sender: FDA-Public Use
  Company Number: None

PATIENT
  Sex: Male

DRUGS (3)
  1. DROXIDOPA [Suspect]
     Active Substance: DROXIDOPA
     Indication: Orthostatic hypotension
     Route: 048
     Dates: start: 20230801
  2. SEROOUEL  TAB 30 MG [Concomitant]
  3. TAMIFLU  CAP 75MG [Concomitant]

REACTIONS (3)
  - Urinary tract infection [None]
  - Blood pressure increased [None]
  - Influenza [None]
